FAERS Safety Report 6925121-0 (Version None)
Quarter: 2010Q3

REPORT INFORMATION
  Report Type: 
  Country: None (occurrence: None)
  Receive Date: 20100816
  Receipt Date: 20100809
  Transmission Date: 20110219
  Serious: Yes (Other)
  Sender: FDA-Public Use
  Company Number: GB-ALLERGAN-1010285US

PATIENT
  Age: 47 Year
  Sex: Male

DRUGS (1)
  1. BOTOX [Suspect]
     Indication: MUSCULOSKELETAL PAIN
     Dosage: 65 UNITS, SINGLE
     Route: 030

REACTIONS (1)
  - SPLENOMEGALY [None]
